FAERS Safety Report 7985702-2 (Version None)
Quarter: 2011Q4

REPORT INFORMATION
  Report Type: 
  Country: None (occurrence: None)
  Receive Date: 20111216
  Receipt Date: 20111216
  Transmission Date: 20120403
  Serious: Yes (Other)
  Sender: FDA-Public Use
  Company Number: None

PATIENT
  Age: 66 Year
  Sex: Female
  Weight: 103.87 kg

DRUGS (13)
  1. METHOCARBAMOL [Concomitant]
     Route: 048
  2. LOSARTAN POTASSIUM [Concomitant]
     Route: 048
  3. FELODIPINE [Concomitant]
     Route: 048
  4. VIMPAT [Suspect]
     Indication: PARTIAL SEIZURES
     Dosage: 150 MG
     Route: 048
     Dates: start: 20111020, end: 20111215
  5. OMEPRAZOLE [Concomitant]
     Route: 048
  6. LORAZEPAM [Concomitant]
     Route: 048
  7. MULTIPLE VITAMIN [Concomitant]
     Route: 048
  8. CLONIDINE [Concomitant]
     Route: 048
  9. MAG-OX [Concomitant]
     Route: 048
  10. PEPCID COMPLETE [Concomitant]
     Route: 048
  11. LAMOTRIGINE [Concomitant]
     Route: 048
  12. PLAVIX [Concomitant]
     Route: 048
  13. CLONAZEPAM [Concomitant]
     Route: 048

REACTIONS (2)
  - URINARY HESITATION [None]
  - PARTIAL SEIZURES [None]
